FAERS Safety Report 7533307-X (Version None)
Quarter: 2011Q2

REPORT INFORMATION
  Report Type: 
  Country: None (occurrence: None)
  Receive Date: 20110608
  Receipt Date: 20110513
  Transmission Date: 20111010
  Serious: Yes (Hospitalization)
  Sender: FDA-Public Use
  Company Number: US-BAYER-201020788NA

PATIENT
  Age: 20 Year
  Sex: Female
  Weight: 79.365 kg

DRUGS (11)
  1. YASMIN [Suspect]
     Indication: PRODUCT USED FOR UNKNOWN INDICATION
     Route: 048
  2. LEVSIN [Concomitant]
     Indication: IRRITABLE BOWEL SYNDROME
  3. AMPHETAMINE AND DEXTROAMPHETAMINE SALTS [Concomitant]
     Indication: ATTENTION DEFICIT/HYPERACTIVITY DISORDER
     Dosage: UNK
     Dates: start: 20070101
  4. MACROBID [Concomitant]
     Indication: URINARY TRACT INFECTION
  5. YAZ [Suspect]
     Indication: ACNE
     Dosage: UNK
     Route: 048
     Dates: start: 20070907, end: 20090501
  6. MINOCYCLINE HCL [Concomitant]
  7. MOTRIN [Concomitant]
  8. ADVIL LIQUI-GELS [Concomitant]
  9. CLINDESSE [Concomitant]
  10. PLEXION [Concomitant]
  11. NSAID'S [Concomitant]

REACTIONS (2)
  - CHOLECYSTITIS [None]
  - PAIN [None]
